FAERS Safety Report 22763985 (Version 6)
Quarter: 2025Q1

REPORT INFORMATION
  Report Type: Spontaneous
  Country: JP (occurrence: JP)
  Receive Date: 20230730
  Receipt Date: 20250115
  Transmission Date: 20250409
  Serious: Yes (Death, Life-Threatening, Hospitalization, Disabling, Other)
  Sender: TAKEDA
  Company Number: JP-TAKEDA-2023TJP009984

PATIENT
  Age: 14 Year
  Sex: Male

DRUGS (1)
  1. VPRIV [Suspect]
     Active Substance: VELAGLUCERASE ALFA
     Indication: Gaucher^s disease
     Dosage: 5 INTERNATIONAL UNIT, Q2WEEKS

REACTIONS (12)
  - Decubitus ulcer [Not Recovered/Not Resolved]
  - Atypical mycobacterial infection [Not Recovered/Not Resolved]
  - Infection [Unknown]
  - Pneumonia [Recovered/Resolved]
  - Death [Fatal]
  - Renal impairment [Recovered/Resolved]
  - Cardiac dysfunction [Recovered/Resolved]
  - Renal failure [Recovered/Resolved]
  - Cholestasis [Not Recovered/Not Resolved]
  - Anaemia [Recovered/Resolved]
  - Hepatic function abnormal [Not Recovered/Not Resolved]
  - Inappropriate schedule of product administration [Unknown]

NARRATIVE: CASE EVENT DATE: 20230720
